FAERS Safety Report 7284797 (Version 8)
Quarter: 2014Q3

REPORT INFORMATION
  Report Type: Spontaneous
  Country: US (occurrence: US)
  Receive Date: 20091201
  Receipt Date: 20140731
  Transmission Date: 20150326
  Serious: Yes (Hospitalization, Disabling, Other)
  Sender: FDA-Public Use
  Company Number: US-009507513-2009-200460-NL

PATIENT
  Sex: Female
  Weight: 79.38 kg

DRUGS (7)
  1. NUVARING [Suspect]
     Active Substance: ETHINYL ESTRADIOL\ETONOGESTREL
     Indication: CONTRACEPTION
     Dosage: UNK
     Route: 067
     Dates: start: 20071218, end: 200808
  2. NUVARING [Suspect]
     Active Substance: ETHINYL ESTRADIOL\ETONOGESTREL
     Indication: PREMENSTRUAL SYNDROME
  3. TOPAMAX [Concomitant]
     Active Substance: TOPIRAMATE
     Indication: MIGRAINE
     Dosage: 50 MG, QD
     Route: 048
     Dates: start: 2007
  4. ZOLOFT [Concomitant]
     Active Substance: SERTRALINE HYDROCHLORIDE
     Indication: DEPRESSION
     Dosage: 25 MG, QD
     Route: 048
     Dates: start: 200402, end: 200712
  5. PRILOSEC [Concomitant]
     Active Substance: OMEPRAZOLE MAGNESIUM
     Indication: GASTROOESOPHAGEAL REFLUX DISEASE
     Dosage: PRN
     Route: 048
  6. CLARITIN [Concomitant]
     Active Substance: LORATADINE
     Indication: PRODUCT USED FOR UNKNOWN INDICATION
     Dosage: 10 MG, PRN
  7. NUVARING [Suspect]
     Active Substance: ETHINYL ESTRADIOL\ETONOGESTREL
     Indication: MENORRHAGIA

REACTIONS (16)
  - Vena cava filter removal [Unknown]
  - Deep vein thrombosis [Recovered/Resolved]
  - Vena cava filter insertion [Unknown]
  - Cervical dysplasia [Unknown]
  - Oedema peripheral [Unknown]
  - Depression [Recovering/Resolving]
  - Uterine leiomyoma [Unknown]
  - Vulva cyst [Not Recovered/Not Resolved]
  - Pain in extremity [Unknown]
  - Thrombophlebitis [Unknown]
  - Chest pain [Unknown]
  - Acute sinusitis [Unknown]
  - Photorefractive keratectomy [Unknown]
  - Hidradenitis [Unknown]
  - Off label use [Unknown]
  - Medical device complication [Unknown]

NARRATIVE: CASE EVENT DATE: 2007
